FAERS Safety Report 19643597 (Version 7)
Quarter: 2022Q2

REPORT INFORMATION
  Report Type: Report from Study
  Country: US (occurrence: US)
  Receive Date: 20210731
  Receipt Date: 20220607
  Transmission Date: 20220721
  Serious: Yes (Hospitalization, Other)
  Sender: FDA-Public Use
  Company Number: US-TAKEDA-US201850083

PATIENT
  Age: 72 Year
  Sex: Female
  Weight: 79 kg

DRUGS (39)
  1. .ALPHA.1-PROTEINASE INHIBITOR HUMAN [Suspect]
     Active Substance: .ALPHA.1-PROTEINASE INHIBITOR HUMAN
     Indication: Alpha-1 antitrypsin deficiency
     Dosage: 5440 MILLIGRAM, 1/WEEK
     Route: 042
     Dates: start: 20160711
  2. .ALPHA.1-PROTEINASE INHIBITOR HUMAN [Suspect]
     Active Substance: .ALPHA.1-PROTEINASE INHIBITOR HUMAN
     Indication: Alpha-1 antitrypsin deficiency
     Dosage: 5440 MILLIGRAM, 1/WEEK
     Route: 042
     Dates: start: 20160711
  3. .ALPHA.1-PROTEINASE INHIBITOR HUMAN [Suspect]
     Active Substance: .ALPHA.1-PROTEINASE INHIBITOR HUMAN
     Dosage: 5360 MILLIGRAM, 1/WEEK
     Route: 042
     Dates: start: 20160711
  4. .ALPHA.1-PROTEINASE INHIBITOR HUMAN [Suspect]
     Active Substance: .ALPHA.1-PROTEINASE INHIBITOR HUMAN
     Dosage: 5360 MILLIGRAM, 1/WEEK
     Route: 042
     Dates: start: 20160711
  5. .ALPHA.1-PROTEINASE INHIBITOR HUMAN [Suspect]
     Active Substance: .ALPHA.1-PROTEINASE INHIBITOR HUMAN
     Dosage: 70 MILLIGRAM/KILOGRAM, 1/WEEK
     Route: 042
     Dates: start: 20160711
  6. .ALPHA.1-PROTEINASE INHIBITOR HUMAN [Suspect]
     Active Substance: .ALPHA.1-PROTEINASE INHIBITOR HUMAN
     Dosage: 70 MILLIGRAM/KILOGRAM, 1/WEEK
     Route: 042
     Dates: start: 20160711
  7. .ALPHA.1-PROTEINASE INHIBITOR HUMAN [Suspect]
     Active Substance: .ALPHA.1-PROTEINASE INHIBITOR HUMAN
     Dosage: UNK UNK, 1/WEEK
     Route: 065
     Dates: start: 20181220
  8. .ALPHA.1-PROTEINASE INHIBITOR HUMAN [Suspect]
     Active Substance: .ALPHA.1-PROTEINASE INHIBITOR HUMAN
     Dosage: UNK UNK, 1/WEEK
     Route: 065
     Dates: start: 20181220
  9. HYDROCODONE [Suspect]
     Active Substance: HYDROCODONE
     Indication: Product used for unknown indication
     Dosage: UNK
     Route: 065
  10. FENTANYL [Concomitant]
     Active Substance: FENTANYL
     Route: 065
  11. OXYCODONE [Concomitant]
     Active Substance: OXYCODONE
     Route: 065
  12. TYLENOL [Concomitant]
     Active Substance: ACETAMINOPHEN
     Indication: Arthritis
     Route: 065
  13. UNSPECIFIED INGREDIENT [Concomitant]
     Active Substance: UNSPECIFIED INGREDIENT
     Indication: Blood cholesterol
     Route: 065
  14. CITALOPRAM [Concomitant]
     Active Substance: CITALOPRAM HYDROBROMIDE
     Route: 065
  15. DIPHENHYDRAMINE [Concomitant]
     Active Substance: DIPHENHYDRAMINE
     Route: 065
  16. SODIUM CHLORIDE [Concomitant]
     Active Substance: SODIUM CHLORIDE
     Route: 065
  17. EPINEPHRINE [Concomitant]
     Active Substance: EPINEPHRINE
     Route: 065
  18. MINERALS\OMEGA-3 FATTY ACIDS\VITAMINS [Concomitant]
     Active Substance: MINERALS\OMEGA-3 FATTY ACIDS\VITAMINS
     Route: 065
  19. LATISSE [Concomitant]
     Active Substance: BIMATOPROST
     Route: 065
  20. FINASTERIDE [Concomitant]
     Active Substance: FINASTERIDE
  21. KETOCONAZOLE [Concomitant]
     Active Substance: KETOCONAZOLE
  22. CLONIDINE [Concomitant]
     Active Substance: CLONIDINE
  23. BUPROPION HYDROCHLORIDE XL [Concomitant]
     Active Substance: BUPROPION HYDROCHLORIDE
  24. ANORO ELLIPTA [Concomitant]
     Active Substance: UMECLIDINIUM BROMIDE\VILANTEROL TRIFENATATE
  25. VITAMIN D3 [Concomitant]
     Active Substance: CHOLECALCIFEROL
  26. ZYRTEC [Concomitant]
     Active Substance: CETIRIZINE HYDROCHLORIDE
  27. RESTASIS [Concomitant]
     Active Substance: CYCLOSPORINE
  28. LIVALO [Concomitant]
     Active Substance: PITAVASTATIN CALCIUM
  29. LOSARTAN AND HYDROCHLOROTHIAZIDE [Concomitant]
     Active Substance: HYDROCHLOROTHIAZIDE\LOSARTAN POTASSIUM
  30. VITAMINS [Concomitant]
     Active Substance: VITAMINS
  31. POTASSIUM CHLORIDE [Concomitant]
     Active Substance: POTASSIUM CHLORIDE
  32. CEFDINIR [Concomitant]
     Active Substance: CEFDINIR
     Route: 065
  33. CALCIUM [Concomitant]
     Active Substance: CALCIUM
  34. LIDOCAINE AND PRILOCAINE [Concomitant]
     Active Substance: LIDOCAINE\PRILOCAINE
  35. PROAIR RESPICLICK [Concomitant]
     Active Substance: ALBUTEROL SULFATE
  36. COLLAGEN [Concomitant]
     Active Substance: COLLAGEN
     Route: 065
  37. ALLEGRA ALLERGY [Concomitant]
     Active Substance: FEXOFENADINE HYDROCHLORIDE
  38. TYLENOL EXTRA STRENGTH [Concomitant]
     Active Substance: ACETAMINOPHEN
     Indication: Arthritis
  39. LOSARTAN AND HYDROCHLOROTHIAZIDE [Concomitant]
     Active Substance: HYDROCHLOROTHIAZIDE\LOSARTAN POTASSIUM

REACTIONS (11)
  - Cervical vertebral fracture [Recovering/Resolving]
  - Knee arthroplasty [Unknown]
  - Fall [Unknown]
  - Seasonal allergy [Unknown]
  - Urinary tract infection [Unknown]
  - Chest discomfort [Recovering/Resolving]
  - Arthritis [Unknown]
  - Back pain [Unknown]
  - Hypersensitivity [Unknown]
  - Pain [Unknown]
  - Tooth infection [Unknown]

NARRATIVE: CASE EVENT DATE: 20181224
